FAERS Safety Report 7903599-3 (Version None)
Quarter: 2011Q4

REPORT INFORMATION
  Report Type: 
  Country: None (occurrence: None)
  Receive Date: 20111109
  Receipt Date: 20111027
  Transmission Date: 20120403
  Serious: Yes (Hospitalization, Other)
  Sender: FDA-Public Use
  Company Number: US-ELI_LILLY_AND_COMPANY-US201103008563

PATIENT
  Sex: Female

DRUGS (13)
  1. FORTEO [Suspect]
     Indication: OSTEOPOROSIS
     Dosage: 20 UG, QD
     Route: 058
     Dates: start: 20101230
  2. FORTEO [Suspect]
     Dosage: 20 UG, QD
     Route: 058
  3. FORTEO [Suspect]
     Dosage: 20 UG, QD
     Route: 058
  4. VITAMIN TAB [Concomitant]
     Dosage: UNK, QD
  5. FISH OIL [Concomitant]
  6. FORTEO [Suspect]
     Dosage: 20 UG, QD
     Route: 058
     Dates: start: 20110304
  7. FORTEO [Suspect]
     Dosage: 20 UG, QD
     Route: 058
  8. VITAMIN D [Concomitant]
  9. NAPROXEN (ALEVE) [Concomitant]
     Indication: MYALGIA
     Dosage: UNK, QD
  10. FORTEO [Suspect]
     Dosage: 20 UG, QD
     Route: 058
  11. CALCIUM [Concomitant]
  12. GLUCOSAMINE [Concomitant]
  13. ASPIRIN [Concomitant]
     Dosage: UNK, QD

REACTIONS (9)
  - ARTHRITIS [None]
  - ARTHRALGIA [None]
  - PAIN IN EXTREMITY [None]
  - HIP FRACTURE [None]
  - MYALGIA [None]
  - IMPAIRED HEALING [None]
  - MUSCLE SPASMS [None]
  - MOVEMENT DISORDER [None]
  - FALL [None]
